FAERS Safety Report 12413130 (Version 4)
Quarter: 2016Q3

REPORT INFORMATION
  Report Type: Report from Study
  Country: US (occurrence: US)
  Receive Date: 20160527
  Receipt Date: 20160726
  Transmission Date: 20161109
  Serious: Yes (Hospitalization, Other)
  Sender: FDA-Public Use
  Company Number: US-GILEAD-2016-0215485

PATIENT
  Age: 16 Year
  Sex: Male
  Weight: 120 kg

DRUGS (11)
  1. REMODULIN [Suspect]
     Active Substance: TREPROSTINIL
     Dosage: 12 MG, UNK
     Route: 041
  2. FUROSEMIDE. [Concomitant]
     Active Substance: FUROSEMIDE
  3. REMODULIN [Suspect]
     Active Substance: TREPROSTINIL
     Indication: PULMONARY ARTERIAL HYPERTENSION
     Dosage: 0.007 UG/KG, CONTINUOUS
     Route: 041
     Dates: start: 20160511
  4. ADCIRCA [Concomitant]
     Active Substance: TADALAFIL
  5. VITAMIN D                          /00107901/ [Concomitant]
     Active Substance: ERGOCALCIFEROL
  6. REMODULIN [Suspect]
     Active Substance: TREPROSTINIL
     Dosage: UNK
     Route: 065
     Dates: start: 20160512
  7. AMBRISENTAN [Suspect]
     Active Substance: AMBRISENTAN
     Indication: PULMONARY ARTERIAL HYPERTENSION
     Dosage: 5 MG, QD
     Route: 048
     Dates: start: 20160118
  8. AUGMENTIN [Concomitant]
     Active Substance: AMOXICILLIN\CLAVULANATE POTASSIUM
  9. IRON [Concomitant]
     Active Substance: IRON
  10. IMODIUM [Concomitant]
     Active Substance: LOPERAMIDE HYDROCHLORIDE
  11. PROSTACYCLIN [Suspect]
     Active Substance: EPOPROSTENOL
     Indication: PRODUCT USED FOR UNKNOWN INDICATION
     Dosage: UNK
     Route: 065
     Dates: start: 20160509

REACTIONS (11)
  - Off label use [Not Recovered/Not Resolved]
  - Tachycardia [Recovered/Resolved]
  - Oxygen saturation decreased [Not Recovered/Not Resolved]
  - Rales [Recovered/Resolved]
  - Cough [Unknown]
  - Dyspnoea [Unknown]
  - Oropharyngeal pain [Recovered/Resolved]
  - Pneumonia [Recovered/Resolved]
  - Enterovirus infection [Recovered/Resolved]
  - Rhinovirus infection [Recovered/Resolved]
  - Haemoptysis [Recovered/Resolved]

NARRATIVE: CASE EVENT DATE: 20160118
